FAERS Safety Report 24719692 (Version 1)
Quarter: 2024Q4

REPORT INFORMATION
  Report Type: Spontaneous
  Country: FR (occurrence: FR)
  Receive Date: 20241211
  Receipt Date: 20241211
  Transmission Date: 20250114
  Serious: Yes (Hospitalization, Other)
  Sender: LEADING PHARMA
  Company Number: FR-LEADINGPHARMA-FR-2024LEALIT00604

PATIENT
  Age: 32 Year
  Sex: Male

DRUGS (1)
  1. HYDROXYUREA [Suspect]
     Active Substance: HYDROXYUREA
     Indication: Sickle cell disease
     Route: 065

REACTIONS (8)
  - Myelodysplastic syndrome [Recovering/Resolving]
  - Acute chest syndrome [Unknown]
  - Sickle cell anaemia with crisis [Unknown]
  - Shock haemorrhagic [Unknown]
  - Retroperitoneal haematoma [Unknown]
  - Polyarteritis nodosa [Recovering/Resolving]
  - Renal aneurysm [Unknown]
  - Product use in unapproved indication [Unknown]
